FAERS Safety Report 14337664 (Version 2)
Quarter: 2018Q1

REPORT INFORMATION
  Report Type: Spontaneous
  Country: GB (occurrence: GB)
  Receive Date: 20171229
  Receipt Date: 20180119
  Transmission Date: 20180509
  Serious: Yes (Hospitalization, Other)
  Sender: FDA-Public Use
  Company Number: GB-PFIZER INC-2017525924

PATIENT
  Age: 59 Year
  Sex: Female
  Weight: 86 kg

DRUGS (40)
  1. ATORVASTATIN [Concomitant]
     Active Substance: ATORVASTATIN
     Dosage: 1 DF, 1X/DAY
     Dates: start: 20170228
  2. FOSTAIR [Concomitant]
     Active Substance: BECLOMETHASONE\FORMOTEROL
     Dosage: 2 DF, 1X/DAY
     Dates: start: 20170228
  3. ALFACALCIDOL [Concomitant]
     Active Substance: ALFACALCIDOL
     Dosage: 1 DF, 1X/DAY
     Dates: start: 20170228
  4. AMLODIPINE [Concomitant]
     Active Substance: AMLODIPINE BESYLATE
     Dosage: 1 DF, 1X/DAY
     Dates: start: 20170228
  5. LACTULOSE. [Concomitant]
     Active Substance: LACTULOSE
     Dosage: 30 ML, 1X/DAY
     Dates: start: 20170801
  6. SERTRALINE [Concomitant]
     Active Substance: SERTRALINE HYDROCHLORIDE
     Dosage: 1 DF, 1X/DAY EACH MORNING
     Dates: start: 20170804
  7. NEORECORMON [Concomitant]
     Active Substance: ERYTHROPOIETIN
     Dosage: 3 DF, WEEKLY (TUES/THURS/SAT WITH DIALYSIS)
     Dates: start: 20170804
  8. CETOMACROGOL 1000 [Concomitant]
     Dosage: 1 DF, AS DIRECTED
     Dates: start: 20170804
  9. DOXAZOSIN [Concomitant]
     Active Substance: DOXAZOSIN\DOXAZOSIN MESYLATE
     Dosage: 4 DF, 1X/DAY
     Dates: start: 20170228
  10. TORASEMIDE [Concomitant]
     Active Substance: TORSEMIDE
     Dosage: 3 DF, 1X/DAY IN THE MORNING.
     Dates: start: 20170228, end: 20170804
  11. GLYCERYL TRINITRATE [Concomitant]
     Active Substance: NITROGLYCERIN
     Dosage: 1 DF, SPRAY ONE PUFF UNDER THE TONGUE WHEN REQUIRED, AS NEEDED
     Route: 060
     Dates: start: 20170804
  12. PARACETAMOL [Concomitant]
     Active Substance: ACETAMINOPHEN
     Dosage: 1 OR 2  DF 4 TIMES/DAY AS NEEDED
     Dates: start: 20170228
  13. DOCUSATE SODIUM. [Concomitant]
     Active Substance: DOCUSATE SODIUM
     Dosage: 6 DF, 1X/DAY
     Dates: start: 20170804
  14. IRBESARTAN. [Concomitant]
     Active Substance: IRBESARTAN
     Dosage: 2 DF, 1X/DAY
     Dates: start: 20170228
  15. CIPROFLOXACIN. [Suspect]
     Active Substance: CIPROFLOXACIN
     Dosage: UNK
     Dates: start: 20170804
  16. AZATHIOPRINE. [Concomitant]
     Active Substance: AZATHIOPRINE
     Dosage: 2 DF, 1X/DAY
     Dates: start: 20170228, end: 20170804
  17. HYDRALAZINE [Concomitant]
     Active Substance: HYDRALAZINE HYDROCHLORIDE
     Dosage: 4 DF, 1X/DAY
     Dates: start: 20170228
  18. SODIUM HYDROGEN CARBONATE [Concomitant]
     Active Substance: SODIUM BICARBONATE
     Dosage: 2 DF, 1X/DAY
     Dates: start: 20170228, end: 20170804
  19. CLOBETASOL PROPIONATE. [Concomitant]
     Active Substance: CLOBETASOL PROPIONATE
     Dosage: 2 DF, 1X/DAY
     Dates: start: 20140213, end: 20170804
  20. SEVELAMER [Concomitant]
     Active Substance: SEVELAMER
     Dosage: 6 DF, 1X/DAY 2TDS
     Dates: start: 20170804
  21. FENTANYL. [Concomitant]
     Active Substance: FENTANYL
     Dosage: 1 DF, UNK, PATCH ONCE EVERY 3 DAYS
     Dates: start: 20170804
  22. AMITRIPTYLINE HYDROCHLORIDE. [Concomitant]
     Active Substance: AMITRIPTYLINE HYDROCHLORIDE
     Dosage: 1 DF, 1X/DAY AT NIGHT.
     Dates: start: 20170228, end: 20170804
  23. ACIDEX [Concomitant]
     Active Substance: CALCIUM CARBONATE\SODIUM ALGINATE\SODIUM BICARBONATE
     Dosage: 40 ML, AS NEEDED
     Dates: start: 20170804
  24. CASSIA SENNA [Concomitant]
     Dosage: 4 DF, AS NEEDED
     Dates: start: 20170228
  25. LANSOPRAZOLE. [Concomitant]
     Active Substance: LANSOPRAZOLE
     Dosage: 2 DF, 1X/DAY
     Dates: start: 20170228
  26. CLOPIDOGREL [Concomitant]
     Active Substance: CLOPIDOGREL BISULFATE
     Dosage: 1 DF, 1X/DAY EVERY MORNING
     Dates: start: 20170804
  27. BRALTUS [Concomitant]
     Dosage: 1 DF, 1X/DAY
     Route: 055
     Dates: start: 20170804
  28. PREGABALIN. [Concomitant]
     Active Substance: PREGABALIN
     Dosage: 1 DF, 1X/DAY (AT NIGHT)
     Dates: start: 20170804
  29. ABASAGLAR [Concomitant]
     Active Substance: INSULIN GLARGINE
     Dosage: 18 IU, 1X/DAY IN THE MORNING.
     Dates: start: 20170228
  30. VANCOMYCIN HCL [Suspect]
     Active Substance: VANCOMYCIN HYDROCHLORIDE
     Dosage: UNK
     Dates: start: 20170804
  31. BISOPROLOL [Concomitant]
     Active Substance: BISOPROLOL
     Dosage: 1 DF, 1X/DAY
     Dates: start: 20170228
  32. CALCICHEW [Concomitant]
     Active Substance: CALCIUM CARBONATE
     Dosage: 1 DF, 1X/DAY
     Dates: start: 20170228, end: 20170804
  33. HYDROXYCARBAMIDE [Concomitant]
     Active Substance: HYDROXYUREA
     Dosage: 1 DF, 1X/DAY
     Dates: start: 20170228, end: 20170804
  34. CHEMYDUR [Concomitant]
     Dosage: 2 DF, 1X/DAY IN THE MORNING
     Dates: start: 20170228, end: 20170804
  35. HUMALOG [Concomitant]
     Active Substance: INSULIN LISPRO
     Dosage: 28 IU, 1X/DAY (14 UNITS WITH LUNCH AND 14 UNITS WITH DINNER)
     Dates: start: 20170228, end: 20170804
  36. FOLIC ACID. [Concomitant]
     Active Substance: FOLIC ACID
     Dosage: 1 DF, 1X/DAY
     Dates: start: 20170228
  37. ALPHOSYL [Concomitant]
     Dosage: 2 DF, WEEKLY
     Dates: start: 20170228, end: 20170804
  38. LAXIDO [Concomitant]
     Active Substance: POLYETHYLENE GLYCOL 3350\POTASSIUM CHLORIDE\SODIUM BICARBONATE\SODIUM CHLORIDE
     Dosage: 1 DF, 2X/DAY
     Dates: start: 20170804
  39. TIOTROPIUM [Concomitant]
     Active Substance: TIOTROPIUM
     Dosage: 1 DF, 1X/DAY
     Route: 055
     Dates: start: 20170228, end: 20170804
  40. WARFARIN SODIUM. [Concomitant]
     Active Substance: WARFARIN SODIUM
     Dosage: TAKE AS DIRECTED IN YELLOW BOOK
     Dates: start: 20170228, end: 20170804

REACTIONS (1)
  - Dermatitis bullous [Recovered/Resolved]

NARRATIVE: CASE EVENT DATE: 20170804
